FAERS Safety Report 9722652 (Version 2)
Quarter: 2013Q2

REPORT INFORMATION
  Report Type: Spontaneous
  Country: US (occurrence: None)
  Receive Date: 20130613
  Receipt Date: 20130619
  Transmission Date: 20140414
  Serious: Yes (Hospitalization)
  Sender: FDA-Public Use
  Company Number: 38802

PATIENT
  Age: 67 Year
  Sex: Male

DRUGS (1)
  1. GLASSIA [Suspect]
     Indication: PRODUCT USED FOR UNKNOWN INDICATION
     Dosage: 6000MG WEEKLY, IV

REACTIONS (3)
  - Hypersensitivity [None]
  - Treatment noncompliance [None]
  - Respiratory disorder [None]
